FAERS Safety Report 6093048-5 (Version None)
Quarter: 2009Q1

REPORT INFORMATION
  Report Type: 
  Country: None (occurrence: None)
  Receive Date: 20090224
  Receipt Date: 20090209
  Transmission Date: 20090719
  Serious: Yes (Disabling)
  Sender: FDA-Public Use
  Company Number: 2009S1002218

PATIENT
  Age: 78 Year
  Sex: Male
  Weight: 90 kg

DRUGS (5)
  1. ALENDRONATE SODIUM [Suspect]
     Indication: OSTEOPOROSIS
     Dosage: 70 MG; WEEKLY; ORAL
     Route: 048
     Dates: start: 20070417, end: 20080626
  2. BONIVA [Suspect]
     Indication: OSTEOPOROSIS
     Dosage: 150 MG; ORAL
     Route: 048
     Dates: start: 20080626, end: 20081224
  3. NEOSTIGMINE [Concomitant]
  4. PREDNISOLONE [Concomitant]
  5. PYRIDOSTIGMINE BROMIDE [Concomitant]

REACTIONS (3)
  - ANXIETY [None]
  - DEPRESSION [None]
  - FATIGUE [None]
